FAERS Safety Report 5494730-0 (Version None)
Quarter: 2007Q4

REPORT INFORMATION
  Report Type: 
  Country: None (occurrence: None)
  Receive Date: 20071023
  Receipt Date: 20071023
  Transmission Date: 20080405
  Serious: Yes (Life-Threatening, Disabling, Other)
  Sender: FDA-Public Use
  Company Number: None

PATIENT
  Age: 38 Year
  Sex: Female
  Weight: 53.5244 kg

DRUGS (1)
  1. CHANTIX [Suspect]
     Indication: SMOKING CESSATION THERAPY
     Dosage: 1 MG  BID  PO
     Route: 048

REACTIONS (10)
  - ANXIETY [None]
  - CONDITION AGGRAVATED [None]
  - GASTRIC DISORDER [None]
  - IMPAIRED DRIVING ABILITY [None]
  - INSOMNIA [None]
  - MENORRHAGIA [None]
  - PANIC REACTION [None]
  - PARANOIA [None]
  - SLEEP DISORDER [None]
  - SUICIDAL IDEATION [None]
